FAERS Safety Report 11076473 (Version 3)
Quarter: 2015Q2

REPORT INFORMATION
  Report Type: Report from Study
  Country: US (occurrence: US)
  Receive Date: 20150429
  Receipt Date: 20150624
  Transmission Date: 20150821
  Serious: Yes (Other)
  Sender: FDA-Public Use
  Company Number: US-BAYER-2015-162356

PATIENT
  Age: 60 Year
  Sex: Male
  Weight: 61 kg

DRUGS (10)
  1. DRONABINOL. [Concomitant]
     Active Substance: DRONABINOL
  2. METHOTREXATE [Concomitant]
     Active Substance: METHOTREXATE
  3. VENTOLIN HFA [Concomitant]
     Active Substance: ALBUTEROL SULFATE
  4. FOLIC ACID. [Concomitant]
     Active Substance: FOLIC ACID
  5. STIVARGA [Suspect]
     Active Substance: REGORAFENIB
     Indication: COLON CANCER STAGE IV
     Dosage: 120 MG QD FOR 21 DAYS, 7 DAYS OFF
     Route: 048
     Dates: start: 20150416
  6. ALEVE [Concomitant]
     Active Substance: NAPROXEN SODIUM
  7. VITAMIN D [Concomitant]
     Active Substance: CHOLECALCIFEROL
  8. STIVARGA [Suspect]
     Active Substance: REGORAFENIB
     Indication: METASTASES TO LIVER
  9. COLACE [Concomitant]
     Active Substance: DOCUSATE SODIUM
  10. CALCIUM CARBONATE. [Concomitant]
     Active Substance: CALCIUM CARBONATE

REACTIONS (10)
  - Hypophagia [None]
  - Stomatitis [None]
  - Bone pain [None]
  - Circulatory collapse [None]
  - Muscle spasms [None]
  - Drug ineffective [None]
  - Fatigue [Unknown]
  - Nausea [None]
  - Decreased appetite [None]
  - Malaise [None]

NARRATIVE: CASE EVENT DATE: 20150416
